FAERS Safety Report 5209324-1 (Version None)
Quarter: 2007Q1

REPORT INFORMATION
  Report Type: 
  Country: None (occurrence: None)
  Receive Date: 20070111
  Receipt Date: 20061229
  Transmission Date: 20070707
  Serious: Yes (Death, Hospitalization)
  Sender: FDA-Public Use
  Company Number: 232234

PATIENT
  Age: 55 Year
  Sex: Male

DRUGS (2)
  1. RAPTIVA [Suspect]
     Indication: PSORIASIS
     Dosage: 1.5 ML, 1/WEEK
     Dates: start: 20050401
  2. CYCLOSPORINE [Concomitant]

REACTIONS (14)
  - BLOOD ALKALINE PHOSPHATASE INCREASED [None]
  - BLOOD BILIRUBIN INCREASED [None]
  - BLOOD ELECTROLYTES DECREASED [None]
  - BODY TEMPERATURE DECREASED [None]
  - BRONCHITIS [None]
  - CONDITION AGGRAVATED [None]
  - DEHYDRATION [None]
  - DEPRESSION [None]
  - ERYTHRODERMIC PSORIASIS [None]
  - HAEMOGLOBIN DECREASED [None]
  - HAEMOPHILUS INFECTION [None]
  - PNEUMONIA [None]
  - PSORIASIS [None]
  - SPUTUM CULTURE POSITIVE [None]
